FAERS Safety Report 7469354-6 (Version None)
Quarter: 2011Q2

REPORT INFORMATION
  Report Type: 
  Country: None (occurrence: None)
  Receive Date: 20110510
  Receipt Date: 20110426
  Transmission Date: 20111010
  Serious: Yes (Other)
  Sender: FDA-Public Use
  Company Number: US-ELI_LILLY_AND_COMPANY-US201007004464

PATIENT
  Sex: Female

DRUGS (16)
  1. NEXIUM [Concomitant]
  2. LIPITOR [Concomitant]
  3. CALTRATE D                         /00944201/ [Concomitant]
  4. FORTEO [Suspect]
     Indication: OSTEOPOROSIS
     Dosage: 20 UG, DAILY (1/D)
     Dates: start: 20100301
  5. FORTICAL /00371903/ [Concomitant]
  6. FORTEO [Suspect]
     Dosage: 20 UG, DAILY (1/D)
  7. FORTEO [Suspect]
     Dosage: 20 UG, DAILY (1/D)
  8. VERAPAMIL [Concomitant]
  9. GLUCOSAMINE + CHONDROITIN [Concomitant]
  10. TRAMADOL HCL [Concomitant]
  11. GABAPENTIN [Concomitant]
  12. HYDROCHLOROTHIAZIDE [Concomitant]
  13. XANAX [Concomitant]
  14. MOBIC [Concomitant]
  15. VITAMIN D [Concomitant]
     Dosage: UNK, WEEKLY (1/W)
  16. ALLOPURINOL [Concomitant]

REACTIONS (8)
  - DIZZINESS [None]
  - SKIN CANCER [None]
  - BENIGN NEOPLASM OF SKIN [None]
  - INJECTION SITE HAEMATOMA [None]
  - ALOPECIA [None]
  - OSTEOARTHRITIS [None]
  - NASOPHARYNGITIS [None]
  - BALANCE DISORDER [None]
